FAERS Safety Report 12416628 (Version 1)
Quarter: 2016Q2

REPORT INFORMATION
  Report Type: Spontaneous
  Country: PH (occurrence: PH)
  Receive Date: 20160530
  Receipt Date: 20160530
  Transmission Date: 20160815
  Serious: Yes (Other)
  Sender: FDA-Public Use
  Company Number: PH-JNJFOC-20140214208

PATIENT
  Age: 8 Decade
  Sex: Male

DRUGS (4)
  1. CELEBREX [Concomitant]
     Active Substance: CELECOXIB
     Indication: PAIN
     Route: 065
  2. ZYTIGA [Suspect]
     Active Substance: ABIRATERONE ACETATE
     Indication: PROSTATE CANCER
     Route: 048
  3. ZYTIGA [Suspect]
     Active Substance: ABIRATERONE ACETATE
     Indication: PROSTATE CANCER
     Route: 048
  4. KETESSE [Concomitant]
     Active Substance: DEXKETOPROFEN TROMETAMOL
     Indication: PAIN
     Route: 065

REACTIONS (5)
  - Haematemesis [Unknown]
  - Haematuria [Unknown]
  - Off label use [Unknown]
  - Contusion [Unknown]
  - Incorrect dose administered [Unknown]
